FAERS Safety Report 25090717 (Version 1)
Quarter: 2025Q1

REPORT INFORMATION
  Report Type: Spontaneous
  Country: PT (occurrence: PT)
  Receive Date: 20250318
  Receipt Date: 20250318
  Transmission Date: 20250409
  Serious: Yes (Other)
  Sender: MERCK SHARP & DOHME LLC
  Company Number: None

PATIENT
  Age: 74 Year
  Sex: Male
  Weight: 80 kg

DRUGS (3)
  1. KEYTRUDA [Suspect]
     Active Substance: PEMBROLIZUMAB
     Dosage: 400 MG EVERY 6 WEEKS
     Route: 042
     Dates: start: 20210712, end: 20211017
  2. CISPLATIN [Suspect]
     Active Substance: CISPLATIN
     Dosage: 111 MG EVERY 3 WEEKS
     Route: 042
     Dates: start: 20201119, end: 20210611
  3. GEMCITABINE [Suspect]
     Active Substance: GEMCITABINE
     Route: 042
     Dates: start: 20201119, end: 20210611

REACTIONS (1)
  - Neuropathy peripheral [Recovering/Resolving]

NARRATIVE: CASE EVENT DATE: 20211223
